FAERS Safety Report 9948350 (Version 1)
Quarter: 2014Q1

REPORT INFORMATION
  Report Type: Report from Study
  Country: US (occurrence: US)
  Receive Date: 20140303
  Receipt Date: 20140303
  Transmission Date: 20141002
  Serious: No
  Sender: FDA-Public Use
  Company Number: US-ABBVIE-13P-163-1059263-00

PATIENT
  Age: 51 Year
  Sex: Female
  Weight: 62.65 kg

DRUGS (9)
  1. HUMIRA [Suspect]
     Indication: PSORIATIC ARTHROPATHY
     Dates: start: 20121213
  2. HUMIRA [Suspect]
     Indication: OSTEOARTHRITIS
  3. VITAMIN D [Concomitant]
     Indication: VITAMIN D DEFICIENCY
  4. EFFEXOR [Concomitant]
     Indication: DEPRESSION
  5. XANAX [Concomitant]
     Indication: ANXIETY DISORDER
  6. PREDNISONE [Concomitant]
     Indication: OSTEOARTHRITIS
     Dosage: DOWN FROM 50 MG DAILY
  7. MECLIZINE [Concomitant]
     Indication: NAUSEA
  8. MECLIZINE [Concomitant]
     Indication: GASTRIC DISORDER
  9. PRENATAL VITAMIN [Concomitant]
     Indication: VITAMIN SUPPLEMENTATION

REACTIONS (2)
  - Off label use [Not Recovered/Not Resolved]
  - Pain [Not Recovered/Not Resolved]
